FAERS Safety Report 4894710-X (Version None)
Quarter: 2006Q1

REPORT INFORMATION
  Report Type: 
  Country: None (occurrence: None)
  Receive Date: 20060126
  Receipt Date: 20060126
  Transmission Date: 20060701
  Serious: Yes (Hospitalization)
  Sender: FDA-Public Use
  Company Number: None

PATIENT
  Age: 58 Year
  Sex: Male
  Weight: 106.8 kg

DRUGS (4)
  1. LISINOPRIL [Suspect]
     Indication: HYPERTENSION
     Dosage: 0.5 TAB PO QAM
     Route: 048
     Dates: start: 20050502, end: 20050120
  2. HYDROCHLOROTHIAZIDE/TRIAMTERENE 50/75MG [Suspect]
     Indication: HYPERTENSION
     Dosage: 0.5 TAB PO QAM
     Route: 048
     Dates: start: 20050601, end: 20060120
  3. YERBA MATE, AN HERBAL TEA [Concomitant]
  4. STEVIA, AN HERBAL SUGAR SUBSTITUTE [Concomitant]

REACTIONS (4)
  - CHOLELITHIASIS [None]
  - DRUG INEFFECTIVE [None]
  - GALLBLADDER POLYP [None]
  - PANCREATITIS ACUTE [None]
